FAERS Safety Report 5251069-6 (Version None)
Quarter: 2007Q1

REPORT INFORMATION
  Report Type: 
  Country: None (occurrence: None)
  Receive Date: 20070228
  Receipt Date: 20060818
  Transmission Date: 20070707
  Serious: No
  Sender: FDA-Public Use
  Company Number: US-GLAXOSMITHKLINE-A0617270A

PATIENT
  Age: 18 Year
  Sex: Female

DRUGS (5)
  1. LAMICTAL [Suspect]
     Indication: BIPOLAR DISORDER
     Dosage: 100MG PER DAY
     Route: 048
     Dates: start: 20060601
  2. CONCERTA [Concomitant]
  3. EFFEXOR [Concomitant]
  4. ORAL CONTRACEPTIVE [Concomitant]
  5. TETRACYCLINE [Concomitant]

REACTIONS (1)
  - RASH [None]
